FAERS Safety Report 6073029-8 (Version None)
Quarter: 2009Q1

REPORT INFORMATION
  Report Type: 
  Country: None (occurrence: None)
  Receive Date: 20090209
  Receipt Date: 20090209
  Transmission Date: 20090719
  Serious: No
  Sender: FDA-Public Use
  Company Number: None

PATIENT
  Age: 42 Year
  Sex: Female
  Weight: 53.5244 kg

DRUGS (1)
  1. SINGULAIR [Suspect]
     Indication: MULTIPLE ALLERGIES
     Dosage: 10MG ONCE AT BEDTIME PO
     Route: 048
     Dates: start: 20081205, end: 20090201

REACTIONS (15)
  - ABDOMINAL PAIN UPPER [None]
  - ANXIETY [None]
  - DIARRHOEA [None]
  - DIZZINESS [None]
  - DROOLING [None]
  - DRUG DOSE OMISSION [None]
  - DYSPEPSIA [None]
  - DYSPHONIA [None]
  - GASTROOESOPHAGEAL REFLUX DISEASE [None]
  - HYPOAESTHESIA [None]
  - INSOMNIA [None]
  - NIGHTMARE [None]
  - OROPHARYNGEAL PAIN [None]
  - PARAESTHESIA [None]
  - PYREXIA [None]
